FAERS Safety Report 9687686 (Version 1)
Quarter: 2013Q4

REPORT INFORMATION
  Report Type: Spontaneous
  Country: US (occurrence: US)
  Receive Date: 20131114
  Receipt Date: 20131114
  Transmission Date: 20140711
  Serious: No
  Sender: FDA-Public Use
  Company Number: US-PFIZER INC-2013321063

PATIENT
  Sex: Male

DRUGS (1)
  1. VIAGRA [Suspect]
     Dosage: ONE TABLET ONCE
     Route: 048
     Dates: start: 20131109, end: 20131109

REACTIONS (2)
  - Erection increased [Not Recovered/Not Resolved]
  - Penile discharge [Not Recovered/Not Resolved]
